FAERS Safety Report 9275053 (Version 1)
Quarter: 2013Q2

REPORT INFORMATION
  Report Type: Spontaneous
  Country: US (occurrence: None)
  Receive Date: 20130430
  Receipt Date: 20130430
  Transmission Date: 20140414
  Serious: Yes (Other)
  Sender: FDA-Public Use
  Company Number: 2013-0930-SPO

PATIENT
  Sex: Female

DRUGS (3)
  1. ESTRADIOL (ESTRADIOL) (GEL) [Suspect]
     Dates: end: 201208
  2. PROMETRIUM [Suspect]
     Dates: end: 201208
  3. LYRICA (PREGABALIN) [Suspect]
     Dosage: DOSAGE INCREASED

REACTIONS (3)
  - Convulsion [None]
  - Somnolence [None]
  - Feeling abnormal [None]
